FAERS Safety Report 6881865-0 (Version None)
Quarter: 2010Q3

REPORT INFORMATION
  Report Type: 
  Country: None (occurrence: None)
  Receive Date: 20100729
  Receipt Date: 20100714
  Transmission Date: 20110219
  Serious: Yes (Hospitalization)
  Sender: FDA-Public Use
  Company Number: US-BAYER-201022416NA

PATIENT
  Age: 46 Year
  Sex: Female
  Weight: 63 kg

DRUGS (4)
  1. YASMIN [Suspect]
     Indication: PREMENSTRUAL SYNDROME
     Dates: start: 20030701, end: 20040701
  2. MULTI-VITAMIN [Concomitant]
     Dosage: ON AND OFF FOR SEVERAL YEARS, 3 TIMES PER WEEK.
  3. FEXOFENADINE [Concomitant]
     Indication: HYPERSENSITIVITY
     Dosage: DAILY.
  4. CITALOPRAM HYDROBROMIDE [Concomitant]
     Dosage: DAILY.

REACTIONS (2)
  - EMBOLISM VENOUS [None]
  - MENSTRUATION IRREGULAR [None]
